FAERS Safety Report 6657006-1 (Version None)
Quarter: 2010Q1

REPORT INFORMATION
  Report Type: 
  Country: None (occurrence: None)
  Receive Date: 20100329
  Receipt Date: 20100329
  Transmission Date: 20100710
  Serious: No
  Sender: FDA-Public Use
  Company Number: None

PATIENT
  Age: 72 Year
  Sex: Female

DRUGS (12)
  1. MACRODANTIN [Suspect]
     Dates: start: 20061201, end: 20090108
  2. SIMVASTATIN [Concomitant]
  3. PREDNISONE TAB [Concomitant]
  4. LISINOPRIL AND HYDROCHLOROTHIAZIDE [Concomitant]
  5. OMEPRAZOLE [Concomitant]
  6. LEVOXYL [Concomitant]
  7. ENABLEX [Concomitant]
  8. CALCIUM CITRATE [Concomitant]
  9. CENTRUM SILVER [Concomitant]
  10. LOVAZA [Concomitant]
  11. PROBIOTIC TABLETS [Concomitant]
  12. ASPIRIN [Concomitant]

REACTIONS (3)
  - AUTOIMMUNE HEPATITIS [None]
  - HEPATIC STEATOSIS [None]
  - LIVER INJURY [None]
